FAERS Safety Report 8449153-9 (Version None)
Quarter: 2012Q2

REPORT INFORMATION
  Report Type: 
  Country: None (occurrence: None)
  Receive Date: 20120619
  Receipt Date: 20120609
  Transmission Date: 20120825
  Serious: Yes (Hospitalization)
  Sender: FDA-Public Use
  Company Number: US-JNJFOC-20120601588

PATIENT
  Sex: Female
  Weight: 68.04 kg

DRUGS (4)
  1. SIMPONI [Suspect]
     Route: 058
     Dates: start: 20110101, end: 20120101
  2. SIMPONI [Suspect]
     Indication: JUVENILE ARTHRITIS
     Route: 058
     Dates: start: 20110101, end: 20120101
  3. SIMPONI [Suspect]
     Route: 058
     Dates: start: 20120401
  4. SIMPONI [Suspect]
     Route: 058
     Dates: start: 20120401

REACTIONS (12)
  - INJECTION SITE HAEMATOMA [None]
  - PYREXIA [None]
  - FATIGUE [None]
  - WHITE BLOOD CELL COUNT INCREASED [None]
  - GASTRIC DISORDER [None]
  - WEIGHT DECREASED [None]
  - OFF LABEL USE [None]
  - OEDEMA PERIPHERAL [None]
  - INAPPROPRIATE SCHEDULE OF DRUG ADMINISTRATION [None]
  - HOSPITALISATION [None]
  - FIBROMYALGIA [None]
  - DRUG INEFFECTIVE [None]
